FAERS Safety Report 6809564-1 (Version None)
Quarter: 2010Q2

REPORT INFORMATION
  Report Type: 
  Country: None (occurrence: None)
  Receive Date: 20100630
  Receipt Date: 20100617
  Transmission Date: 20101027
  Serious: Yes (Hospitalization)
  Sender: FDA-Public Use
  Company Number: PHHY2010DE40654

PATIENT
  Age: 30 Year
  Sex: Male

DRUGS (1)
  1. LEPONEX [Suspect]

REACTIONS (9)
  - APHASIA [None]
  - ASTHENIA [None]
  - DYSPHEMIA [None]
  - GAIT DISTURBANCE [None]
  - MIOSIS [None]
  - SALIVARY HYPERSECRETION [None]
  - SEDATION [None]
  - SPEECH DISORDER [None]
  - VOMITING [None]
